FAERS Safety Report 23210292 (Version 1)
Quarter: 2023Q4

REPORT INFORMATION
  Report Type: Spontaneous
  Country: US (occurrence: US)
  Receive Date: 20231121
  Receipt Date: 20231121
  Transmission Date: 20240110
  Serious: No
  Sender: FDA-Public Use
  Company Number: US-ASTELLAS-2023US033932

PATIENT
  Age: 71 Year
  Sex: Female

DRUGS (1)
  1. VEOZAH [Suspect]
     Active Substance: FEZOLINETANT
     Indication: Hot flush
     Route: 065
     Dates: start: 20231021

REACTIONS (5)
  - Fatigue [Unknown]
  - Thirst [Unknown]
  - Hunger [Unknown]
  - Condition aggravated [Unknown]
  - Brain fog [Unknown]
